FAERS Safety Report 9144464 (Version 2)
Quarter: 2013Q1

REPORT INFORMATION
  Report Type: Spontaneous
  Country: GB (occurrence: GB)
  Receive Date: 20130306
  Receipt Date: 20130314
  Transmission Date: 20140127
  Serious: Yes (Other)
  Sender: FDA-Public Use
  Company Number: GB-WATSON-2013-03644

PATIENT
  Sex: Female

DRUGS (1)
  1. DIAZEPAM (WATSON LABORATORIES) [Suspect]
     Indication: PRODUCT USED FOR UNKNOWN INDICATION
     Dosage: DOSE NOT STATED
     Route: 065

REACTIONS (3)
  - Victim of child abuse [Unknown]
  - Intentional drug misuse [Unknown]
  - Overdose [Unknown]
